FAERS Safety Report 5744366-9 (Version None)
Quarter: 2008Q2

REPORT INFORMATION
  Report Type: 
  Country: None (occurrence: None)
  Receive Date: 20080516
  Receipt Date: 20080502
  Transmission Date: 20081010
  Serious: Yes (Death)
  Sender: FDA-Public Use
  Company Number: 2008AL003232

PATIENT
  Sex: Female

DRUGS (1)
  1. DIGOXIN  (AMIDE) [Suspect]

REACTIONS (5)
  - DIZZINESS [None]
  - HYPOTENSION [None]
  - MYOCARDIAL INFARCTION [None]
  - NAUSEA [None]
  - VOMITING [None]
